FAERS Safety Report 13336579 (Version 1)
Quarter: 2017Q1

REPORT INFORMATION
  Report Type: Spontaneous
  Country: TH (occurrence: TH)
  Receive Date: 20170315
  Receipt Date: 20170315
  Transmission Date: 20170428
  Serious: Yes (Other)
  Sender: FDA-Public Use
  Company Number: TH-LUPIN PHARMACEUTICALS INC.-2017-00293

PATIENT
  Age: 72 Year
  Sex: Male

DRUGS (17)
  1. AMIKACIN [Suspect]
     Active Substance: AMIKACIN
     Indication: MYCOBACTERIUM ABSCESSUS INFECTION
     Dosage: INITIALLY AS EMPIRICAL REGIMENS FOR NON-TB TREATMENT
     Route: 042
  2. CIPROFLOXACIN. [Suspect]
     Active Substance: CIPROFLOXACIN
     Indication: MYCOBACTERIUM ABSCESSUS INFECTION
     Dosage: UNK UNK,UNK,UNKNOWN
     Route: 065
  3. IMIPENEM AND CILASTATIN [Concomitant]
     Active Substance: CILASTATIN SODIUM\IMIPENEM
     Indication: MYCOBACTERIUM ABSCESSUS INFECTION
     Dosage: INITIALLY AS EMPIRICAL REGIMENS FOR NON-TB TREATMENT
     Route: 042
  4. CLARITHROMYCIN. [Concomitant]
     Active Substance: CLARITHROMYCIN
     Indication: MYCOBACTERIUM ABSCESSUS INFECTION
     Dosage: UNK UNK,UNK,UNKNOWN
     Route: 065
  5. CLARITHROMYCIN. [Concomitant]
     Active Substance: CLARITHROMYCIN
     Dosage: UNK UNK,UNK,UNKNOWN
     Route: 065
  6. ETHAMBUTOL [Concomitant]
     Active Substance: ETHAMBUTOL HYDROCHLORIDE
     Dosage: UNK UNK,UNK,UNKNOWN
     Route: 065
  7. AMIKACIN [Suspect]
     Active Substance: AMIKACIN
     Dosage: UNK UNK,AS DIRECTED,
     Route: 065
  8. ITRACONAZOLE. [Concomitant]
     Active Substance: ITRACONAZOLE
     Dosage: UNK UNK,UNK,
     Route: 048
  9. LINEZOLID. [Suspect]
     Active Substance: LINEZOLID
     Indication: MYCOBACTERIUM ABSCESSUS INFECTION
     Dosage: UNK UNK,UNK,UNKNOWN
     Route: 065
  10. CLARITHROMYCIN. [Concomitant]
     Active Substance: CLARITHROMYCIN
     Dosage: UNK UNK,UNK,UNKNOWN
     Route: 065
  11. LIPOSOMAL AMPHOTERICIN B [Concomitant]
     Active Substance: AMPHOTERICIN B
     Dosage: UNK UNK,UNK,
     Route: 065
  12. ITRACONAZOLE. [Concomitant]
     Active Substance: ITRACONAZOLE
     Dosage: UNK UNK,UNK,
     Route: 065
  13. METHYLPREDNISOLONE. [Concomitant]
     Active Substance: METHYLPREDNISOLONE
     Dosage: UNK UNK,UNK,UNKNOWN
     Route: 065
  14. RITUXIMAB [Concomitant]
     Active Substance: RITUXIMAB
     Indication: SKIN LESION
     Dosage: 375 MG/M2,AS DIRECTED,
     Route: 065
  15. AMIKACIN [Suspect]
     Active Substance: AMIKACIN
     Dosage: {3TIMES/WEEK
     Route: 065
  16. CIPROFLOXACIN. [Suspect]
     Active Substance: CIPROFLOXACIN
     Dosage: UNK UNK,UNK,UNKNOWN
     Route: 065
  17. METHYLPREDNISOLONE. [Concomitant]
     Active Substance: METHYLPREDNISOLONE
     Indication: SKIN LESION
     Dosage: 1000 MG,UNK,UNKNOWN
     Route: 065

REACTIONS (2)
  - Electrocardiogram QT prolonged [Unknown]
  - Thrombocytopenia [Unknown]
